FAERS Safety Report 17834342 (Version 1)
Quarter: 2020Q2

REPORT INFORMATION
  Report Type: Spontaneous
  Country: US (occurrence: US)
  Receive Date: 20200528
  Receipt Date: 20200528
  Transmission Date: 20200714
  Serious: No
  Sender: FDA-Public Use
  Company Number: US-SA-2020SA136540

PATIENT
  Age: 68 Year
  Sex: Female

DRUGS (2)
  1. PRALUENT [Suspect]
     Active Substance: ALIROCUMAB
     Indication: HYPERCHOLESTEROLAEMIA
     Dosage: 75 MG
     Dates: start: 201910
  2. PRALUENT [Suspect]
     Active Substance: ALIROCUMAB
     Dosage: 150 MG, QOW

REACTIONS (20)
  - Joint stiffness [Unknown]
  - Musculoskeletal stiffness [Unknown]
  - Condition aggravated [Unknown]
  - Taste disorder [Unknown]
  - Influenza like illness [Unknown]
  - Asthenia [Unknown]
  - Abdominal discomfort [Recovering/Resolving]
  - Bladder discomfort [Recovering/Resolving]
  - Flatulence [Unknown]
  - Decreased appetite [Unknown]
  - Joint swelling [Unknown]
  - Therapeutic response decreased [Unknown]
  - Nasopharyngitis [Unknown]
  - Myalgia [Unknown]
  - Chills [Unknown]
  - Diarrhoea [Unknown]
  - Mucous stools [Unknown]
  - Bone pain [Unknown]
  - Gastrooesophageal reflux disease [Unknown]
  - Abdominal distension [Unknown]
